FAERS Safety Report 19398560 (Version 1)
Quarter: 2021Q2

REPORT INFORMATION
  Report Type: Spontaneous
  Country: US (occurrence: US)
  Receive Date: 20210609
  Receipt Date: 20210609
  Transmission Date: 20210717
  Serious: Yes (Disabling, Other)
  Sender: FDA-Public Use
  Company Number: None

PATIENT
  Age: 30 Year
  Sex: Female

DRUGS (1)
  1. ZIPRASIDONE HCL 20 AND 40 MG CAPSULES GENERIC FOR GEODON [Suspect]
     Active Substance: ZIPRASIDONE HYDROCHLORIDE
     Dosage: ?          OTHER STRENGTH:20;?
     Dates: start: 20200317, end: 20200801

REACTIONS (7)
  - Off label use [None]
  - Drug ineffective [None]
  - Oral pain [None]
  - Eye inflammation [None]
  - White blood cell count decreased [None]
  - Eye infection [None]
  - Nausea [None]

NARRATIVE: CASE EVENT DATE: 20200317
